FAERS Safety Report 6898587-2 (Version None)
Quarter: 2010Q3

REPORT INFORMATION
  Report Type: 
  Country: None (occurrence: None)
  Receive Date: 20100802
  Receipt Date: 20071031
  Transmission Date: 20110219
  Serious: Yes (Other)
  Sender: FDA-Public Use
  Company Number: US-PFIZER INC-2007046842

PATIENT
  Sex: Female
  Weight: 62.6 kg

DRUGS (12)
  1. LYRICA [Suspect]
     Indication: NERVE INJURY
     Dates: start: 20070412, end: 20070101
  2. LYRICA [Suspect]
     Indication: NEURALGIA
  3. AVAPRO [Concomitant]
  4. TIMOPTIC [Concomitant]
  5. FOSAMAX [Concomitant]
  6. PREVACID [Concomitant]
  7. SYNTHROID [Concomitant]
  8. NASONEX [Concomitant]
  9. ACETYLSALICYLIC ACID SRT [Concomitant]
  10. CALCIUM [Concomitant]
  11. MULTI-VITAMINS [Concomitant]
  12. VITAMIN B [Concomitant]

REACTIONS (4)
  - DIZZINESS [None]
  - DRUG INEFFECTIVE [None]
  - IMPAIRED DRIVING ABILITY [None]
  - WEIGHT INCREASED [None]
